FAERS Safety Report 20706011 (Version 9)
Quarter: 2023Q1

REPORT INFORMATION
  Report Type: Spontaneous
  Country: US (occurrence: US)
  Receive Date: 20220413
  Receipt Date: 20230315
  Transmission Date: 20230417
  Serious: Yes (Other)
  Sender: FDA-Public Use
  Company Number: US-PFIZER INC-202200560258

PATIENT
  Age: 65 Year
  Sex: Female

DRUGS (3)
  1. IBRANCE [Suspect]
     Active Substance: PALBOCICLIB
     Indication: Breast cancer female
     Dosage: 125 MG, CYCLIC (3X7 UD TAB 21)
  2. LETROZOLE [Concomitant]
     Active Substance: LETROZOLE
     Dosage: UNK
  3. ZOMETA [Concomitant]
     Active Substance: ZOLEDRONIC ACID
     Dosage: UNK

REACTIONS (40)
  - Rheumatoid arthritis [Unknown]
  - Intracranial aneurysm [Unknown]
  - Hypothyroidism [Unknown]
  - Neoplasm progression [Unknown]
  - Feeling abnormal [Unknown]
  - Radiation injury [Unknown]
  - Hypoaesthesia [Unknown]
  - Malaise [Unknown]
  - Dyspepsia [Unknown]
  - Back pain [Unknown]
  - Lethargy [Unknown]
  - Somnolence [Unknown]
  - Arthropathy [Unknown]
  - Gait disturbance [Unknown]
  - Neuralgia [Unknown]
  - Spinal pain [Unknown]
  - Eating disorder [Unknown]
  - Abdominal discomfort [Unknown]
  - Tendonitis [Unknown]
  - Skeletal injury [Unknown]
  - Pain [Unknown]
  - Vitamin B complex deficiency [Unknown]
  - Vitamin D deficiency [Unknown]
  - Taste disorder [Unknown]
  - Parosmia [Unknown]
  - Constipation [Unknown]
  - Diarrhoea [Unknown]
  - Dry mouth [Unknown]
  - Gastrooesophageal reflux disease [Unknown]
  - Fatigue [Unknown]
  - Memory impairment [Unknown]
  - Poor quality sleep [Unknown]
  - Nausea [Unknown]
  - Odynophagia [Unknown]
  - Pain in extremity [Unknown]
  - Rash [Unknown]
  - Skin haemorrhage [Unknown]
  - Sciatica [Unknown]
  - Balance disorder [Unknown]
  - Liver disorder [Unknown]

NARRATIVE: CASE EVENT DATE: 20220101
